FAERS Safety Report 7471388-2 (Version None)
Quarter: 2011Q2

REPORT INFORMATION
  Report Type: 
  Country: None (occurrence: None)
  Receive Date: 20110510
  Receipt Date: 20110426
  Transmission Date: 20111010
  Serious: Yes (Hospitalization)
  Sender: FDA-Public Use
  Company Number: US-ELI_LILLY_AND_COMPANY-US201010001787

PATIENT
  Sex: Female

DRUGS (22)
  1. CARBIDOPA + LEVODOPA [Concomitant]
  2. PREDNISONE [Concomitant]
  3. ENTERIC ASPIRIN [Concomitant]
  4. METHOTREXATE [Concomitant]
  5. OMEPRAZOL [Concomitant]
  6. CALCIUM W/VITAMIN D /00188401/ [Concomitant]
  7. SIMVASTATIN [Concomitant]
  8. VIT B12 [Concomitant]
  9. FORTEO [Suspect]
     Indication: OSTEOPOROSIS
     Dosage: 20 UG, DAILY (1/D)
     Dates: start: 20090705
  10. FORTEO [Suspect]
     Dosage: 20 UG, QD
  11. ATENOLOL [Concomitant]
  12. ACETAMINOPHEN [Suspect]
  13. TYLENOL PM [Suspect]
  14. ACYCLOVIR [Concomitant]
  15. GABAPENTIN [Concomitant]
  16. HYDROCODONE BITARTRATE AND ACETAMINOPHEN [Concomitant]
  17. VIT B6 [Concomitant]
  18. FOLIC ACID [Concomitant]
  19. ASPIRIN [Concomitant]
  20. VITAMIN C [Concomitant]
  21. FERROUS SULFATE TAB [Concomitant]
  22. EXCEDRIN (MIGRAINE) [Concomitant]

REACTIONS (10)
  - PAIN IN EXTREMITY [None]
  - BACK PAIN [None]
  - SURGERY [None]
  - RHEUMATOID ARTHRITIS [None]
  - BALANCE DISORDER [None]
  - PROCEDURAL PAIN [None]
  - ARTHRALGIA [None]
  - HAND DEFORMITY [None]
  - CATARACT [None]
  - MUSCULOSKELETAL PAIN [None]
